FAERS Safety Report 15903546 (Version 1)
Quarter: 2019Q1

REPORT INFORMATION
  Report Type: Spontaneous
  Country: US (occurrence: US)
  Receive Date: 20190203
  Receipt Date: 20190203
  Transmission Date: 20190417
  Serious: Yes (Hospitalization, Other)
  Sender: FDA-Public Use
  Company Number: US-AMGEN-USASP2019014201

PATIENT
  Age: 81 Year
  Sex: Male

DRUGS (2)
  1. CALCIUM [Concomitant]
     Active Substance: CALCIUM
  2. PROLIA [Suspect]
     Active Substance: DENOSUMAB
     Indication: OSTEOPOROSIS
     Dosage: 60 MG, Q6MO
     Route: 065

REACTIONS (7)
  - Fall [Unknown]
  - Blood creatine phosphokinase abnormal [Unknown]
  - Pleural effusion [Unknown]
  - Mobility decreased [Unknown]
  - Glycogen storage disease type V [Unknown]
  - Pneumonia [Unknown]
  - Neck pain [Unknown]

NARRATIVE: CASE EVENT DATE: 201901
